FAERS Safety Report 7996991-2 (Version None)
Quarter: 2011Q4

REPORT INFORMATION
  Report Type: 
  Country: None (occurrence: None)
  Receive Date: 20111221
  Receipt Date: 20111215
  Transmission Date: 20120403
  Serious: Yes (Death, Hospitalization, Other)
  Sender: FDA-Public Use
  Company Number: PHHY2011MX110032

PATIENT
  Sex: Female

DRUGS (2)
  1. LEVOTHYROXINE SODIUM [Concomitant]
     Dosage: 5 MG/100 ML, QMO
     Dates: start: 20100801, end: 20101201
  2. ZOMETA [Suspect]
     Indication: MULTIPLE MYELOMA
     Dosage: 4 MG/5ML, QMO
     Route: 042
     Dates: start: 20100801, end: 20101201

REACTIONS (3)
  - RESPIRATORY ARREST [None]
  - NEOPLASM PROGRESSION [None]
  - NEOPLASM MALIGNANT [None]
